FAERS Safety Report 20898620 (Version 2)
Quarter: 2022Q2

REPORT INFORMATION
  Report Type: Spontaneous
  Country: US (occurrence: US)
  Receive Date: 20220601
  Receipt Date: 20220629
  Transmission Date: 20220721
  Serious: No
  Sender: FDA-Public Use
  Company Number: US-AIMMUNE THERAPEUTICS, INC.-2022AIMT00420

PATIENT

DRUGS (6)
  1. PALFORZIA [Suspect]
     Active Substance: PEANUT
     Indication: Food allergy
     Dosage: 300 MG, 1X/DAY
     Route: 048
     Dates: start: 20220328
  2. PALFORZIA [Suspect]
     Active Substance: PEANUT
     Dosage: 300 MG, MISSED DOSE
     Route: 048
     Dates: start: 20220514, end: 20220514
  3. PALFORZIA [Suspect]
     Active Substance: PEANUT
     Dosage: 300 MG, 1X/DAY, RESTARTED
     Route: 048
     Dates: start: 20220515
  4. PALFORZIA [Suspect]
     Active Substance: PEANUT
     Dosage: 300 MG, ONCE, LAST DOSE PRIOR ANAPAHYLAXIS
     Route: 048
     Dates: start: 20220515, end: 20220515
  5. PALFORZIA [Suspect]
     Active Substance: PEANUT
     Dosage: 200 MG, 1X/DAY, DOSE DECREASED
     Route: 048
     Dates: start: 20220519, end: 20220608
  6. PALFORZIA [Suspect]
     Active Substance: PEANUT
     Dosage: 240 MG, 1X/DAY, DOSE INCREASED
     Route: 048
     Dates: start: 20220609

REACTIONS (8)
  - Gastroenteritis viral [Recovered/Resolved]
  - Dehydration [Recovered/Resolved]
  - Dysphagia [Recovered/Resolved]
  - Vomiting [Recovered/Resolved]
  - Anaphylactic reaction [Recovered/Resolved]
  - Sensation of foreign body [Recovered/Resolved]
  - Throat irritation [Recovered/Resolved]
  - Nausea [Recovered/Resolved]

NARRATIVE: CASE EVENT DATE: 20220510
